FAERS Safety Report 16777354 (Version 1)
Quarter: 2019Q4

REPORT INFORMATION
  Report Type: Spontaneous
  Country: US (occurrence: US)
  Receive Date: 20190905
  Receipt Date: 20190905
  Transmission Date: 20200122
  Serious: Yes (Hospitalization)
  Sender: FDA-Public Use
  Company Number: None

PATIENT
  Age: 20 Year
  Sex: Female

DRUGS (14)
  1. INDOMETHACIN. [Concomitant]
     Active Substance: INDOMETHACIN
  2. NAPROXEN. [Concomitant]
     Active Substance: NAPROXEN
  3. ENBREL [Suspect]
     Active Substance: ETANERCEPT
     Indication: RHEUMATOID ARTHRITIS
     Dosage: ?          OTHER FREQUENCY:WEEKLY;?
     Route: 058
     Dates: start: 20190624
  4. DULOXETINE. [Concomitant]
     Active Substance: DULOXETINE
  5. METHOTREXATE. [Concomitant]
     Active Substance: METHOTREXATE
  6. TIZANIDINE. [Concomitant]
     Active Substance: TIZANIDINE
  7. AMBIEN [Concomitant]
     Active Substance: ZOLPIDEM TARTRATE
  8. FOLIC ACID. [Concomitant]
     Active Substance: FOLIC ACID
  9. LO LOESTRIN FE [Concomitant]
     Active Substance: ETHINYL ESTRADIOL\NORETHINDRONE ACETATE
  10. BALCOLTRA [Concomitant]
     Active Substance: ETHINYL ESTRADIOL\LEVONORGESTREL
  11. DRSPIRENONE [Concomitant]
  12. OMEPRAZOLE. [Concomitant]
     Active Substance: OMEPRAZOLE
  13. TAYTULLA [Concomitant]
     Active Substance: ETHINYL ESTRADIOL\NORETHINDRONE ACETATE
  14. PREDNISONE. [Concomitant]
     Active Substance: PREDNISONE

REACTIONS (3)
  - Inflammation [None]
  - Dyspnoea [None]
  - Chest pain [None]

NARRATIVE: CASE EVENT DATE: 20190822
